FAERS Safety Report 7977437-7 (Version None)
Quarter: 2011Q4

REPORT INFORMATION
  Report Type: 
  Country: None (occurrence: None)
  Receive Date: 20111213
  Receipt Date: 20111102
  Transmission Date: 20120403
  Serious: No
  Sender: FDA-Public Use
  Company Number: US-AMGEN-USASP2011050991

PATIENT
  Age: 58 Year
  Sex: Male

DRUGS (6)
  1. DICLOFENAC [Concomitant]
     Indication: PSORIATIC ARTHROPATHY
     Dosage: 100 UNK, QD
     Route: 048
  2. ENBREL [Suspect]
     Indication: PSORIASIS
  3. MECLOFENAMATE SODIUM [Concomitant]
     Indication: PSORIATIC ARTHROPATHY
     Dosage: 100 UNK, BID
     Route: 048
  4. ENBREL [Suspect]
     Indication: PSORIATIC ARTHROPATHY
  5. PREDNISONE TAB [Concomitant]
     Indication: PSORIATIC ARTHROPATHY
     Dosage: 5 UNK, BID
     Route: 048
  6. ENBREL [Suspect]
     Indication: RHEUMATOID ARTHRITIS
     Dosage: 50 MG, QWK
     Route: 058
     Dates: start: 20110401, end: 20111101

REACTIONS (1)
  - PSORIASIS [None]
